FAERS Safety Report 4508302-5 (Version None)
Quarter: 2004Q4

REPORT INFORMATION
  Report Type: 
  Country: None (occurrence: None)
  Receive Date: 20041123
  Receipt Date: 20031223
  Transmission Date: 20050328
  Serious: No
  Sender: FDA-Public Use
  Company Number: US-GLAXOSMITHKLINE-A0444130A

PATIENT
  Age: 39 Year
  Sex: Female

DRUGS (4)
  1. WELLBUTRIN SR [Suspect]
     Indication: DEPRESSION
     Dosage: 150MG PER DAY
     Route: 048
  2. WELLBUTRIN XL [Suspect]
     Indication: DEPRESSION
     Dosage: 150MG PER DAY
     Route: 048
     Dates: start: 20031216, end: 20031222
  3. XANAX [Concomitant]
  4. CALCIUM [Concomitant]

REACTIONS (7)
  - ABNORMAL DREAMS [None]
  - ANGER [None]
  - ANXIETY [None]
  - DEPRESSION [None]
  - FATIGUE [None]
  - INSOMNIA [None]
  - IRRITABILITY [None]
